FAERS Safety Report 8036297-9 (Version None)
Quarter: 2012Q1

REPORT INFORMATION
  Report Type: 
  Country: None (occurrence: None)
  Receive Date: 20120111
  Receipt Date: 20120106
  Transmission Date: 20120608
  Serious: Yes (Hospitalization)
  Sender: FDA-Public Use
  Company Number: PHHO2011KR16135

PATIENT
  Sex: Male
  Weight: 67.1 kg

DRUGS (4)
  1. NEORAL [Suspect]
     Indication: RENAL TRANSPLANT
     Dosage: 125 MG, BID
     Route: 048
     Dates: start: 20110818
  2. MYCOPHENOLIC ACID [Suspect]
     Dosage: 720 MG, UNK
     Route: 048
     Dates: start: 20110914
  3. HAEMODIALYSIS [Concomitant]
     Indication: RENAL FAILURE CHRONIC
     Dosage: UNK
     Dates: start: 20090101
  4. MYCOPHENOLIC ACID [Suspect]
     Indication: RENAL TRANSPLANT
     Dosage: 720 MG, UNK
     Route: 048
     Dates: start: 20110818, end: 20110913

REACTIONS (1)
  - HEAT RASH [None]
